FAERS Safety Report 9524664 (Version 1)
Quarter: 2013Q3

REPORT INFORMATION
  Report Type: Spontaneous
  Country: CN (occurrence: CN)
  Receive Date: 20130916
  Receipt Date: 20130916
  Transmission Date: 20140515
  Serious: Yes (Hospitalization)
  Sender: FDA-Public Use
  Company Number: CN-PFIZER INC-2013261487

PATIENT
  Age: 86 Year
  Sex: Male
  Weight: 67.5 kg

DRUGS (3)
  1. DIFLUCAN [Suspect]
     Indication: PNEUMONIA ASPIRATION
     Dosage: 0.2 G, ONCE DAILY
     Route: 041
     Dates: start: 20120713, end: 20120719
  2. CILASTATIN SODIUM W/IMIPENEM [Concomitant]
     Dosage: 0.5 G, THREE TIMES DAILY
     Dates: start: 20120712
  3. LINEZOLID [Concomitant]
     Dosage: 0.6 G, TWICE DAILY
     Dates: start: 20120714

REACTIONS (5)
  - Pseudomembranous colitis [Recovering/Resolving]
  - Abdominal distension [Recovering/Resolving]
  - Diarrhoea [Recovering/Resolving]
  - Body temperature increased [Recovering/Resolving]
  - Occult blood positive [Recovering/Resolving]
